FAERS Safety Report 8434709-X (Version None)
Quarter: 2012Q2

REPORT INFORMATION
  Report Type: 
  Country: None (occurrence: None)
  Receive Date: 20120323
  Receipt Date: 20110707
  Transmission Date: 20120825
  Serious: Yes (Hospitalization)
  Sender: FDA-Public Use
  Company Number: 163-21880-11070575

PATIENT
  Age: 76 Year
  Sex: Male
  Weight: 62.1428 kg

DRUGS (5)
  1. DEXAMETHASONE [Suspect]
     Indication: MULTIPLE MYELOMA
     Dosage: 40 MG, DAYS 1, 8, 15, 22, PO    DAYS 1, 8, 15, 22, PO
     Route: 048
     Dates: start: 20110404, end: 20110416
  2. DEXAMETHASONE [Suspect]
     Indication: MULTIPLE MYELOMA
     Dosage: 40 MG, DAYS 1, 8, 15, 22, PO    DAYS 1, 8, 15, 22, PO
     Route: 048
     Dates: start: 20110509, end: 20110623
  3. REVLIMID [Suspect]
     Indication: MULTIPLE MYELOMA
     Dosage: 25 MG, DAYS 1-21, PO
     Route: 048
     Dates: start: 20110509, end: 20110623
  4. ASPIRIN [Concomitant]
  5. LEVOFLOXACIN [Concomitant]

REACTIONS (2)
  - PULMONARY EMBOLISM [None]
  - PNEUMONIA [None]
